FAERS Safety Report 5746956-6 (Version None)
Quarter: 2008Q2

REPORT INFORMATION
  Report Type: 
  Country: None (occurrence: None)
  Receive Date: 20080522
  Receipt Date: 20080512
  Transmission Date: 20081010
  Serious: Yes (Other)
  Sender: FDA-Public Use
  Company Number: JP-PFIZER INC-2008040959

PATIENT
  Sex: Female

DRUGS (1)
  1. CARDENALIN [Suspect]
     Route: 048

REACTIONS (1)
  - FLOPPY IRIS SYNDROME [None]
